FAERS Safety Report 9477911 (Version 1)
Quarter: 2013Q3

REPORT INFORMATION
  Report Type: Spontaneous
  Country: US (occurrence: None)
  Receive Date: 20130826
  Receipt Date: 20130826
  Transmission Date: 20140515
  Serious: No
  Sender: FDA-Public Use
  Company Number: None

PATIENT
  Age: 63 Year
  Sex: Male
  Weight: 107.7 kg

DRUGS (1)
  1. SODIUM CHLORIDE [Suspect]
     Indication: COLONOSCOPY
     Dates: start: 20130315, end: 20130315

REACTIONS (1)
  - Skin discolouration [None]
